FAERS Safety Report 7447514-8 (Version None)
Quarter: 2011Q2

REPORT INFORMATION
  Report Type: 
  Country: None (occurrence: None)
  Receive Date: 20110429
  Receipt Date: 20110125
  Transmission Date: 20111010
  Serious: No
  Sender: FDA-Public Use
  Company Number: US-ASTRAZENECA-2011SE04621

PATIENT
  Age: 67 Year
  Sex: Female
  Weight: 79.8 kg

DRUGS (3)
  1. SYNTHROID [Concomitant]
     Indication: HYPOTHYROIDISM
  2. NEXIUM [Suspect]
     Indication: GASTRIC ULCER
     Route: 048
  3. HYZAAR [Concomitant]
     Indication: HYPERTENSION

REACTIONS (4)
  - OESOPHAGEAL PAIN [None]
  - ABDOMINAL PAIN [None]
  - FLATULENCE [None]
  - DRUG INEFFECTIVE [None]
